FAERS Safety Report 9929537 (Version 1)
Quarter: 2014Q1

REPORT INFORMATION
  Report Type: Spontaneous
  Country: US (occurrence: US)
  Receive Date: 20140227
  Receipt Date: 20140227
  Transmission Date: 20141002
  Serious: Yes (Hospitalization, Other)
  Sender: FDA-Public Use
  Company Number: US-SHIONOGI, INC-2014000084

PATIENT
  Age: 62 Year
  Sex: Female

DRUGS (6)
  1. OSPHENA [Suspect]
     Indication: VULVOVAGINAL DRYNESS
     Dosage: 60 MG, QD
     Route: 048
     Dates: start: 20140205, end: 20140217
  2. OSPHENA [Suspect]
     Indication: OFF LABEL USE
  3. HYDROCHLOROTHIAZIDE [Concomitant]
     Indication: SWELLING
     Dosage: 25 MG, UNK
     Route: 048
  4. XANAX [Concomitant]
     Indication: MYALGIA
     Dosage: 0.5 MG, UNK
     Route: 048
  5. XANAX [Concomitant]
     Indication: FEELING OF RELAXATION
  6. AUGMENTIN [Concomitant]
     Indication: URINARY TRACT INFECTION
     Dosage: UNK
     Route: 065
     Dates: start: 20140210, end: 20140216

REACTIONS (8)
  - Hypoacusis [Not Recovered/Not Resolved]
  - Trismus [Recovered/Resolved]
  - Back pain [Recovered/Resolved]
  - Musculoskeletal pain [Recovered/Resolved]
  - Ear pain [Not Recovered/Not Resolved]
  - Tenderness [Not Recovered/Not Resolved]
  - Urinary tract infection [Unknown]
  - Off label use [Recovered/Resolved]
